FAERS Safety Report 9325781 (Version 1)
Quarter: 2013Q2

REPORT INFORMATION
  Report Type: Spontaneous
  Country: US (occurrence: US)
  Receive Date: 20130604
  Receipt Date: 20130604
  Transmission Date: 20140414
  Serious: Yes (Other)
  Sender: FDA-Public Use
  Company Number: US-SANOFI-AVENTIS-2013SA055799

PATIENT
  Age: 54 Year
  Sex: Female

DRUGS (10)
  1. LANTUS SOLOSTAR [Suspect]
     Indication: TYPE 2 DIABETES MELLITUS
     Route: 058
     Dates: start: 20130315, end: 20130525
  2. LANTUS SOLOSTAR [Suspect]
     Indication: TYPE 2 DIABETES MELLITUS
     Dosage: DOSE:15 UNIT(S)
     Route: 058
     Dates: start: 20130530
  3. SOLOSTAR [Suspect]
     Indication: TYPE 2 DIABETES MELLITUS
     Dates: start: 20130315, end: 20130525
  4. SOLOSTAR [Suspect]
     Indication: TYPE 2 DIABETES MELLITUS
     Dates: start: 20130530
  5. APIDRA [Suspect]
     Route: 058
  6. HUMALOG [Suspect]
     Dates: end: 20130525
  7. LEVEMIR [Suspect]
     Route: 065
  8. BYETTA [Concomitant]
  9. NOVOLOG [Concomitant]
  10. JANUVIA [Concomitant]

REACTIONS (12)
  - Neuropathy peripheral [Unknown]
  - Angioedema [Unknown]
  - Drug hypersensitivity [Unknown]
  - Feeling abnormal [Unknown]
  - Back disorder [Unknown]
  - Dyspnoea [Unknown]
  - Thirst [Unknown]
  - Anxiety [Unknown]
  - Visual acuity reduced [Unknown]
  - Blood glucose increased [Unknown]
  - Blister [Unknown]
  - Pain [Unknown]
